FAERS Safety Report 15542087 (Version 1)
Quarter: 2018Q4

REPORT INFORMATION
  Report Type: Spontaneous
  Country: TR (occurrence: TR)
  Receive Date: 20181023
  Receipt Date: 20181023
  Transmission Date: 20190205
  Serious: Yes (Other)
  Sender: FDA-Public Use
  Company Number: TR-GLAXOSMITHKLINE-TR2018GSK186743

PATIENT
  Age: 6 Year
  Sex: Male

DRUGS (2)
  1. SERTACONAZOLE [Suspect]
     Active Substance: SERTACONAZOLE
     Indication: INFECTION
  2. TERBINAFINE. [Suspect]
     Active Substance: TERBINAFINE
     Indication: INFECTION

REACTIONS (4)
  - Rash pustular [Recovered/Resolved]
  - Kaposi^s varicelliform eruption [Recovered/Resolved]
  - Rash [Recovered/Resolved]
  - Lymphadenopathy [Recovered/Resolved]
